FAERS Safety Report 5325354-3 (Version None)
Quarter: 2007Q2

REPORT INFORMATION
  Report Type: 
  Country: None (occurrence: None)
  Receive Date: 20070515
  Receipt Date: 20070504
  Transmission Date: 20071010
  Serious: Yes (Hospitalization)
  Sender: FDA-Public Use
  Company Number: AU-BRISTOL-MYERS SQUIBB COMPANY-13778840

PATIENT
  Age: 73 Year
  Sex: Male

DRUGS (7)
  1. METFORMIN HCL [Suspect]
     Indication: DIABETES MELLITUS
     Route: 048
     Dates: end: 20060525
  2. OMEPRAZOLE [Suspect]
     Route: 048
     Dates: start: 20060517, end: 20060522
  3. LIPITOR [Suspect]
     Indication: METABOLIC DISORDER
     Route: 048
     Dates: end: 20060525
  4. TIMENTIN [Suspect]
     Route: 042
     Dates: start: 20060520, end: 20060523
  5. AMOXICILLIN [Suspect]
     Route: 048
     Dates: start: 20060517, end: 20060522
  6. KLACID [Suspect]
     Route: 048
     Dates: start: 20060517, end: 20060522
  7. DIAMICRON [Suspect]
     Indication: METABOLIC DISORDER
     Route: 048
     Dates: end: 20060525

REACTIONS (1)
  - PERIVASCULAR DERMATITIS [None]
